FAERS Safety Report 21307443 (Version 1)
Quarter: 2022Q3

REPORT INFORMATION
  Report Type: Spontaneous
  Country: CN (occurrence: CN)
  Receive Date: 20220908
  Receipt Date: 20220908
  Transmission Date: 20221027
  Serious: Yes (Hospitalization)
  Sender: FDA-Public Use
  Company Number: CN-PFIZER INC-PV202200059381

PATIENT
  Age: 51 Year
  Sex: Female
  Weight: 45.2 kg

DRUGS (4)
  1. MEDROL [Suspect]
     Active Substance: METHYLPREDNISOLONE
     Indication: Overlap syndrome
     Dosage: 8 MG, 1X/DAY
     Route: 048
     Dates: start: 20220526, end: 20220727
  2. PROGRAF [Suspect]
     Active Substance: TACROLIMUS
     Indication: Overlap syndrome
     Dosage: 1 MG, 2X/DAY
     Route: 048
     Dates: start: 20220526, end: 20220727
  3. BENLYSTA [Suspect]
     Active Substance: BELIMUMAB
     Indication: Overlap syndrome
     Dosage: 480 MG, 1X/DAY
     Route: 041
     Dates: start: 20220526, end: 20220526
  4. SODIUM CHLORIDE [Concomitant]
     Active Substance: SODIUM CHLORIDE
     Indication: Vehicle solution use
     Dosage: 250 ML, 1X/DAY
     Route: 041
     Dates: start: 20220526, end: 20220526

REACTIONS (4)
  - Enterococcal infection [Recovering/Resolving]
  - Cough [Recovering/Resolving]
  - Pyrexia [Recovered/Resolved]
  - Chills [Recovering/Resolving]

NARRATIVE: CASE EVENT DATE: 20220601
